FAERS Safety Report 20368982 (Version 1)
Quarter: 2022Q1

REPORT INFORMATION
  Report Type: Spontaneous
  Country: US (occurrence: None)
  Receive Date: 20220123
  Receipt Date: 20220123
  Transmission Date: 20220423
  Serious: Yes (Life-Threatening)
  Sender: FDA-Public Use
  Company Number: None

PATIENT
  Age: 63 Year
  Sex: Female
  Weight: 51.75 kg

DRUGS (7)
  1. REMDESIVIR [Suspect]
     Active Substance: REMDESIVIR
     Indication: SARS-CoV-2 test positive
     Dosage: FREQUENCY : DAILY;?
     Route: 041
     Dates: start: 20210821, end: 20210825
  2. Heparin 5000 [Concomitant]
  3. CEFTRIAXONE [Concomitant]
     Active Substance: CEFTRIAXONE
  4. DOXYCYCLINE [Concomitant]
     Active Substance: DOXYCYCLINE
  5. ADVAIR HFA [Concomitant]
     Active Substance: FLUTICASONE PROPIONATE\SALMETEROL XINAFOATE
  6. DUONEB [Concomitant]
     Active Substance: ALBUTEROL SULFATE\IPRATROPIUM BROMIDE
  7. COMBIVENT [Concomitant]
     Active Substance: ALBUTEROL SULFATE\IPRATROPIUM BROMIDE

REACTIONS (1)
  - Bradycardia [None]

NARRATIVE: CASE EVENT DATE: 20210823
